FAERS Safety Report 5059836-9 (Version None)
Quarter: 2006Q3

REPORT INFORMATION
  Report Type: 
  Country: None (occurrence: None)
  Receive Date: 20060724
  Receipt Date: 20060620
  Transmission Date: 20061208
  Serious: Yes (Hospitalization, Other)
  Sender: FDA-Public Use
  Company Number: 2006CG01088

PATIENT
  Age: 23856 Day
  Sex: Male
  Weight: 65 kg

DRUGS (4)
  1. IRESSA [Suspect]
     Indication: SQUAMOUS CELL CARCINOMA
     Route: 048
     Dates: start: 20060426, end: 20060608
  2. CISPLATIN [Suspect]
     Indication: SQUAMOUS CELL CARCINOMA
     Route: 042
     Dates: start: 20060503, end: 20060523
  3. RADIOTHERAPY [Suspect]
     Indication: SQUAMOUS CELL CARCINOMA
     Dosage: TOTAL DOSE RECEIVED : 36 GRAYS
     Dates: start: 20060503
  4. PRACTAZIN [Concomitant]
     Indication: HYPERTENSION
     Route: 048

REACTIONS (1)
  - SKIN REACTION [None]
